FAERS Safety Report 8455805-7 (Version None)
Quarter: 2012Q2

REPORT INFORMATION
  Report Type: 
  Country: None (occurrence: None)
  Receive Date: 20120621
  Receipt Date: 20120613
  Transmission Date: 20120825
  Serious: Yes (Hospitalization)
  Sender: FDA-Public Use
  Company Number: JP-EISAI INC-E7389-02278-CLI-JP

PATIENT
  Sex: Male
  Weight: 59 kg

DRUGS (13)
  1. MAGLAX [Concomitant]
     Indication: CANCER PAIN
     Route: 048
     Dates: start: 20111013
  2. LOXONIN [Concomitant]
  3. PROCHLORPERAZINE [Concomitant]
  4. PREGABALIN [Concomitant]
     Route: 048
     Dates: start: 20120322
  5. POSTERISAN [Concomitant]
  6. EPIRUBICIN HYDROCHLORIDE [Suspect]
     Route: 041
     Dates: start: 20120112, end: 20120119
  7. LEVOFLOXACIN [Concomitant]
  8. OXYCONTIN [Concomitant]
  9. ACETAMINOPHEN [Concomitant]
  10. EPIRUBICIN HYDROCHLORIDE [Suspect]
     Indication: LIPOSARCOMA
     Route: 041
     Dates: start: 20120202
  11. AZUNOL [Concomitant]
     Route: 048
     Dates: start: 20120202
  12. LANSOPRAZOLE [Concomitant]
  13. OXYCODONE HCL [Concomitant]

REACTIONS (2)
  - FEBRILE NEUTROPENIA [None]
  - ILEUS [None]
